FAERS Safety Report 13894779 (Version 1)
Quarter: 2017Q3

REPORT INFORMATION
  Report Type: Spontaneous
  Country: US (occurrence: US)
  Receive Date: 20170817
  Receipt Date: 20170817
  Transmission Date: 20171127
  Serious: Yes (Hospitalization, Other)
  Sender: FDA-Public Use
  Company Number: None

PATIENT
  Age: 65 Year
  Sex: Male
  Weight: 89 kg

DRUGS (4)
  1. BUPIVACINE PF [Suspect]
     Active Substance: BUPIVACAINE
     Indication: EYE OPERATION
     Dosage: ?          OTHER FREQUENCY:ONCE;?
     Route: 056
     Dates: start: 20170728, end: 20170728
  2. PHENYLEPHRINE [Concomitant]
     Active Substance: PHENYLEPHRINE\PHENYLEPHRINE HYDROCHLORIDE
  3. TOBRAMYCIN. [Concomitant]
     Active Substance: TOBRAMYCIN
  4. ATROPINE. [Concomitant]
     Active Substance: ATROPINE

REACTIONS (3)
  - Pupillary reflex impaired [None]
  - IIIrd nerve paralysis [None]
  - Mydriasis [None]

NARRATIVE: CASE EVENT DATE: 20170728
